FAERS Safety Report 4583286-2 (Version None)
Quarter: 2005Q1

REPORT INFORMATION
  Report Type: 
  Country: None (occurrence: None)
  Receive Date: 20050125
  Receipt Date: 20041005
  Transmission Date: 20050727
  Serious: No
  Sender: FDA-Public Use
  Company Number: USA041080252

PATIENT
  Age: 78 Year
  Sex: Female
  Weight: 48 kg

DRUGS (4)
  1. FORTEO [Suspect]
     Indication: OSTEOPOROSIS
     Dosage: 20 UG/1 DAY
     Dates: start: 20040601
  2. METHOTREXATE [Concomitant]
  3. PRINIVIL [Concomitant]
  4. PREDNISONE [Concomitant]

REACTIONS (3)
  - FEELING ABNORMAL [None]
  - INJECTION SITE IRRITATION [None]
  - NECK PAIN [None]
